FAERS Safety Report 7026696-6 (Version None)
Quarter: 2010Q4

REPORT INFORMATION
  Report Type: 
  Country: None (occurrence: None)
  Receive Date: 20101004
  Receipt Date: 20100921
  Transmission Date: 20110411
  Serious: Yes (Other)
  Sender: FDA-Public Use
  Company Number: GB-SHIRE-SPV1-2010-01463

PATIENT
  Sex: Female

DRUGS (1)
  1. MIDON [Suspect]
     Indication: HYPOTENSION
     Dosage: 2.5 MG, 2X/DAY:BID
     Route: 048
     Dates: start: 20100610

REACTIONS (9)
  - ANXIETY [None]
  - ARRHYTHMIA [None]
  - DIZZINESS [None]
  - HEADACHE [None]
  - HYPERTENSION [None]
  - NAUSEA [None]
  - PALPITATIONS [None]
  - POLYURIA [None]
  - RESTLESSNESS [None]
